FAERS Safety Report 7493520-7 (Version None)
Quarter: 2011Q2

REPORT INFORMATION
  Report Type: 
  Country: None (occurrence: None)
  Receive Date: 20110520
  Receipt Date: 20110516
  Transmission Date: 20111010
  Serious: Yes (Other)
  Sender: FDA-Public Use
  Company Number: FR-PFIZER INC-2011104229

PATIENT

DRUGS (1)
  1. VFEND [Suspect]

REACTIONS (1)
  - CHOLECYSTECTOMY [None]
